FAERS Safety Report 4442714-3 (Version None)
Quarter: 2004Q3

REPORT INFORMATION
  Report Type: 
  Country: None (occurrence: None)
  Receive Date: 20040903
  Receipt Date: 20040617
  Transmission Date: 20050211
  Serious: Yes (Other)
  Sender: FDA-Public Use
  Company Number: 2004UW12675

PATIENT
  Age: 59 Year
  Sex: Male
  Weight: 78.9259 kg

DRUGS (2)
  1. CRESTOR [Suspect]
     Indication: BLOOD CHOLESTEROL INCREASED
     Dosage: 10 MG PO
     Route: 048
     Dates: start: 20040501, end: 20040601
  2. COZAAR [Concomitant]

REACTIONS (1)
  - ABNORMAL DREAMS [None]
